FAERS Safety Report 8924564 (Version 1)
Quarter: 2012Q4

REPORT INFORMATION
  Report Type: Report from Study
  Country: DE (occurrence: DE)
  Receive Date: 20121126
  Receipt Date: 20121126
  Transmission Date: 20130627
  Serious: Yes (Hospitalization)
  Sender: FDA-Public Use
  Company Number: DE-ROCHE-1158637

PATIENT
  Age: 48 Year
  Sex: Female
  Weight: 83.5 kg

DRUGS (7)
  1. TRASTUZUMAB [Suspect]
     Indication: BREAST CANCER
     Dosage: Last dose prior to SAE:11/OCT/2012
     Route: 042
     Dates: start: 20120809
  2. PACLITAXEL [Suspect]
     Indication: BREAST CANCER
     Dosage: Last dose prior to SAE:11/OCT/2012
     Route: 042
     Dates: start: 20120809
  3. MYOCET [Suspect]
     Indication: BREAST CANCER
     Dosage: Last dose prior to SAE:11/OCT/2012
     Route: 042
     Dates: start: 20120809
  4. CARBOPLATIN [Suspect]
     Indication: BREAST CANCER
     Route: 042
     Dates: start: 20120809
  5. LAPATINIB [Suspect]
     Indication: BREAST CANCER
     Dosage: Last dose prior to SAE:14/OCT/2012
     Route: 048
     Dates: start: 20120809, end: 20121013
  6. LAPATINIB [Suspect]
     Route: 048
     Dates: start: 20121014, end: 20121018
  7. L-THYROXIN [Concomitant]
     Route: 065
     Dates: start: 2001

REACTIONS (1)
  - General physical health deterioration [Recovered/Resolved]
